FAERS Safety Report 7232617-3 (Version None)
Quarter: 2011Q1

REPORT INFORMATION
  Report Type: 
  Country: None (occurrence: None)
  Receive Date: 20110119
  Receipt Date: 20110111
  Transmission Date: 20110831
  Serious: Yes (Other)
  Sender: FDA-Public Use
  Company Number: CA-NOVOPROD-321459

PATIENT
  Age: 69 Year
  Sex: Male

DRUGS (4)
  1. VICTOZA [Suspect]
     Dosage: 1.2 UNK, UNK
     Route: 065
     Dates: start: 20101122
  2. VICTOZA [Suspect]
     Dosage: 1.8 UNK, UNK
     Route: 065
     Dates: start: 20101203
  3. METFORMIN HCL [Concomitant]
  4. VICTOZA [Suspect]
     Indication: PRODUCT USED FOR UNKNOWN INDICATION
     Dosage: 0.6 UNK, UNK
     Route: 065
     Dates: start: 20101112

REACTIONS (1)
  - CARDIAC ARREST [None]
